FAERS Safety Report 8400947 (Version 6)
Quarter: 2013Q4

REPORT INFORMATION
  Report Type: Spontaneous
  Country: US (occurrence: US)
  Receive Date: 20120210
  Receipt Date: 20131108
  Transmission Date: 20140711
  Serious: Yes (Disabling, Other)
  Sender: FDA-Public Use
  Company Number: US-009507513-1202USA01313

PATIENT
  Age: 56 Year
  Sex: Male
  Weight: 90.72 kg

DRUGS (6)
  1. ZOCOR [Suspect]
     Indication: BLOOD CHOLESTEROL INCREASED
     Dosage: 40 MG, QD
     Route: 048
     Dates: start: 2002
  2. ZOCOR [Suspect]
     Dosage: 20 MG, UNK
     Route: 048
  3. ASPIRIN [Concomitant]
     Indication: CARDIAC DISORDER
     Dosage: 385 MG, QD
  4. DOXAZOSIN MESYLATE [Concomitant]
     Indication: PROSTATIC DISORDER
     Dosage: 2 MG, QD
  5. TRICOR (FENOFIBRATE) [Concomitant]
     Indication: BLOOD CHOLESTEROL INCREASED
     Dosage: 145 MG, QD
     Route: 048
  6. LIPITOR [Suspect]
     Dosage: 20 MG, QD
     Route: 048

REACTIONS (4)
  - Coronary artery disease [Unknown]
  - Bladder disorder [Unknown]
  - Insomnia [Unknown]
  - Cardiac disorder [Unknown]
